FAERS Safety Report 9510926 (Version 1)
Quarter: 2013Q3

REPORT INFORMATION
  Report Type: Spontaneous
  Country: US (occurrence: US)
  Receive Date: 20130910
  Receipt Date: 20130910
  Transmission Date: 20140515
  Serious: No
  Sender: FDA-Public Use
  Company Number: US-009507513-1309USA001800

PATIENT
  Age: 55 Year
  Sex: Female

DRUGS (1)
  1. PEGINTRON [Suspect]
     Indication: HEPATITIS C
     Dosage: 72 MICROGRAM, QW
     Route: 058
     Dates: start: 20130129, end: 20130603

REACTIONS (1)
  - White blood cell count decreased [Unknown]
